FAERS Safety Report 21326317 (Version 1)
Quarter: 2022Q3

REPORT INFORMATION
  Report Type: Spontaneous
  Country: NO (occurrence: NO)
  Receive Date: 20220913
  Receipt Date: 20220913
  Transmission Date: 20221027
  Serious: Yes (Hospitalization)
  Sender: FDA-Public Use
  Company Number: None

PATIENT
  Age: 44 Year
  Sex: Male

DRUGS (1)
  1. REMICADE [Suspect]
     Active Substance: INFLIXIMAB
     Indication: Colitis ulcerative
     Dosage: THE SYMPTOMS STARTED AFTER 2. DOSE. THE PATIENT HAS TOTALLY RECEIVED 5 DOSAGES.
     Route: 041
     Dates: start: 202204

REACTIONS (1)
  - Hypersensitivity pneumonitis [Recovering/Resolving]

NARRATIVE: CASE EVENT DATE: 20220809
